FAERS Safety Report 4443114-2 (Version None)
Quarter: 2004Q3

REPORT INFORMATION
  Report Type: 
  Country: None (occurrence: None)
  Receive Date: 20040907
  Receipt Date: 20040823
  Transmission Date: 20050211
  Serious: Yes (Other)
  Sender: FDA-Public Use
  Company Number: 04-00519

PATIENT
  Age: 43 Year
  Sex: Female

DRUGS (1)
  1. PSEUDOEPHRINE HYDROCHLORIDE SYRUP (ALPHARMA) [Suspect]
     Indication: RHINITIS ALLERGIC
     Dosage: 45-75 MG Q4H, ORAL
     Route: 048

REACTIONS (1)
  - CHORIORETINOPATHY [None]
